FAERS Safety Report 21871369 (Version 1)
Quarter: 2023Q1

REPORT INFORMATION
  Report Type: Spontaneous
  Country: US (occurrence: US)
  Receive Date: 20230117
  Receipt Date: 20230117
  Transmission Date: 20230418
  Serious: No
  Sender: FDA-Public Use
  Company Number: US-BAYER-2023A003352

PATIENT
  Age: 51 Year
  Sex: Female

DRUGS (2)
  1. MIRALAX [Suspect]
     Active Substance: POLYETHYLENE GLYCOL 3350
     Indication: Gastrointestinal disorder
     Dosage: 1 FULL CAP A DAY DOSE
     Route: 048
     Dates: start: 20220101, end: 20221001
  2. FLOREX [BENZETHONIUM CHLORIDE;CLIOQUINOL;DEXPANTHENOL;USNIC ACID] [Concomitant]

REACTIONS (2)
  - Drug ineffective [Recovering/Resolving]
  - Product use issue [Recovering/Resolving]

NARRATIVE: CASE EVENT DATE: 20220101
